FAERS Safety Report 20481945 (Version 1)
Quarter: 2022Q1

REPORT INFORMATION
  Report Type: Report from Study
  Country: US (occurrence: US)
  Receive Date: 20220216
  Receipt Date: 20220216
  Transmission Date: 20220423
  Serious: Yes (Hospitalization, Other)
  Sender: FDA-Public Use
  Company Number: US-JAZZ-2022-US-002999

PATIENT
  Sex: Female

DRUGS (13)
  1. XYWAV [Suspect]
     Active Substance: CALCIUM OXYBATE\MAGNESIUM OXYBATE\POTASSIUM OXYBATE\SODIUM OXYBATE
     Indication: Narcolepsy
     Dosage: 2.25 GRAM, BID
     Route: 048
     Dates: start: 20220110
  2. ADDERALL [Concomitant]
     Active Substance: AMPHETAMINE ASPARTATE\AMPHETAMINE SULFATE\DEXTROAMPHETAMINE SACCHARATE\DEXTROAMPHETAMINE SULFATE
     Dosage: 0000
     Dates: start: 20210826
  3. ADDERALL [Concomitant]
     Active Substance: AMPHETAMINE ASPARTATE\AMPHETAMINE SULFATE\DEXTROAMPHETAMINE SACCHARATE\DEXTROAMPHETAMINE SULFATE
     Dosage: 0000
     Dates: start: 20210824
  4. EFFEXOR [Concomitant]
     Active Substance: VENLAFAXINE HYDROCHLORIDE
     Dosage: 0000
     Dates: start: 20210404
  5. BAQSIMI [Concomitant]
     Active Substance: GLUCAGON
     Dosage: 0000
     Dates: start: 20191219
  6. HUMALOG [Concomitant]
     Active Substance: INSULIN LISPRO
     Dosage: 100 UNIT/ML VIAL
     Dates: start: 20210715
  7. LEVOTHYROXINE [Concomitant]
     Active Substance: LEVOTHYROXINE
     Dosage: 0000
     Dates: start: 20210907
  8. PROMETHAZINE [Concomitant]
     Active Substance: PROMETHAZINE HYDROCHLORIDE
     Dosage: 0000
     Dates: start: 20191004
  9. METFORMIN HYDROCHLORIDE [Concomitant]
     Active Substance: METFORMIN HYDROCHLORIDE
     Dosage: 0000
     Dates: start: 20200612
  10. NUVARING [Concomitant]
     Active Substance: ETHINYL ESTRADIOL\ETONOGESTREL
     Dosage: VAGINAL RING
     Dates: start: 20210802
  11. TOLTERODINE TARTRA [Concomitant]
     Dosage: 0000
     Dates: start: 20210609
  12. AIMOVIG [Concomitant]
     Active Substance: ERENUMAB-AOOE
     Dosage: DOSE-2 AUTOINJ
     Dates: start: 20211017
  13. NURTEC ODT [Concomitant]
     Active Substance: RIMEGEPANT SULFATE
     Dosage: 0000
     Dates: start: 20210106

REACTIONS (15)
  - Diabetic ketoacidosis [Unknown]
  - Visual impairment [Unknown]
  - Urinary tract infection [Unknown]
  - Back pain [Unknown]
  - Migraine [Unknown]
  - Muscle spasms [Unknown]
  - Dizziness [Unknown]
  - Nausea [Unknown]
  - Feeling drunk [Unknown]
  - Confusional state [Unknown]
  - Feeling abnormal [Unknown]
  - Urinary incontinence [Unknown]
  - Intentional product use issue [Unknown]
  - Product dose omission issue [Unknown]
  - Drug titration error [Unknown]
